FAERS Safety Report 6015908-3 (Version None)
Quarter: 2008Q4

REPORT INFORMATION
  Report Type: 
  Country: None (occurrence: None)
  Receive Date: 20081222
  Receipt Date: 20081217
  Transmission Date: 20090506
  Serious: Yes (Other)
  Sender: FDA-Public Use
  Company Number: B0551363A

PATIENT
  Age: 90 Year
  Sex: Female

DRUGS (2)
  1. ARTIST [Suspect]
     Indication: HYPERTENSION
     Dosage: 20MG PER DAY
     Route: 048
     Dates: end: 20081205
  2. POTASSIUM CHLORIDE [Concomitant]

REACTIONS (3)
  - BRADYCARDIA [None]
  - CARDIOMEGALY [None]
  - OEDEMA PERIPHERAL [None]
